FAERS Safety Report 5276796-6 (Version None)
Quarter: 2007Q1

REPORT INFORMATION
  Report Type: 
  Country: None (occurrence: None)
  Receive Date: 20070327
  Receipt Date: 20070315
  Transmission Date: 20070707
  Serious: Yes (Other)
  Sender: FDA-Public Use
  Company Number: BR-JNJFOC-20070304847

PATIENT
  Age: 3 Year
  Sex: Male

DRUGS (2)
  1. MAXIFEN [Suspect]
  2. MAXIFEN [Suspect]
     Indication: DRUG USE FOR UNKNOWN INDICATION

REACTIONS (1)
  - KAWASAKI'S DISEASE [None]
